FAERS Safety Report 19221608 (Version 2)
Quarter: 2021Q2

REPORT INFORMATION
  Report Type: Spontaneous
  Country: AU (occurrence: AU)
  Receive Date: 20210506
  Receipt Date: 20210515
  Transmission Date: 20210717
  Serious: Yes (Other)
  Sender: FDA-Public Use
  Company Number: AU-ROCHE-2823337

PATIENT
  Age: 70 Year
  Sex: Male

DRUGS (10)
  1. REANDRON [Concomitant]
     Active Substance: TESTOSTERONE
     Dosage: 3 MONTHLY INJECTION
  2. NUTROPIN AQ [Suspect]
     Active Substance: SOMATROPIN
     Indication: GROWTH HORMONE DEFICIENCY
     Dosage: DOSE AND STRENGTH: NOT REPORTED
     Route: 058
     Dates: start: 2019
  3. NUTROPIN AQ [Suspect]
     Active Substance: SOMATROPIN
     Indication: CRANIOPHARYNGIOMA
     Dosage: DOSE AND STRENGTH: NOT REPORTED
     Route: 058
     Dates: start: 202012
  4. MINIRIN [Concomitant]
     Active Substance: DESMOPRESSIN ACETATE
  5. ROSUVASTATIN. [Concomitant]
     Active Substance: ROSUVASTATIN
  6. HYDROCORTISONE. [Concomitant]
     Active Substance: HYDROCORTISONE
  7. PROPRANOLOL [Concomitant]
     Active Substance: PROPRANOLOL HYDROCHLORIDE
  8. ZANIDIP [Concomitant]
     Active Substance: LERCANIDIPINE HYDROCHLORIDE
  9. THYROXINE [Concomitant]
     Active Substance: LEVOTHYROXINE
  10. PLAVIX [Concomitant]
     Active Substance: CLOPIDOGREL BISULFATE

REACTIONS (1)
  - Hepatic neoplasm [Unknown]

NARRATIVE: CASE EVENT DATE: 202101
